FAERS Safety Report 13140824 (Version 1)
Quarter: 2017Q1

REPORT INFORMATION
  Report Type: Report from Study
  Country: DK (occurrence: DK)
  Receive Date: 20170123
  Receipt Date: 20170123
  Transmission Date: 20170428
  Serious: Yes (Other)
  Sender: FDA-Public Use
  Company Number: DK-TEVA-729996ACC

PATIENT
  Sex: Female

DRUGS (1)
  1. LEVETIRACETAM. [Suspect]
     Active Substance: LEVETIRACETAM
     Indication: EPILEPSY
     Dosage: 8000 MG DAILY

REACTIONS (5)
  - Pregnancy [Unknown]
  - Abortion induced [Unknown]
  - Off label use [Unknown]
  - Exposure during pregnancy [Unknown]
  - Overdose [Unknown]
